FAERS Safety Report 4785493-2 (Version None)
Quarter: 2005Q3

REPORT INFORMATION
  Report Type: 
  Country: None (occurrence: None)
  Receive Date: 20050929
  Receipt Date: 20050919
  Transmission Date: 20060218
  Serious: Yes (Hospitalization)
  Sender: FDA-Public Use
  Company Number: HQWYE524019SEP05

PATIENT
  Age: 75 Year
  Sex: Male

DRUGS (7)
  1. CORDARONE [Suspect]
     Indication: ATRIAL FIBRILLATION
     Dosage: 200 MG 1X PER 1 DAY, ORAL
     Route: 048
     Dates: start: 20050520, end: 20050701
  2. LANSOPRAZOLE [Concomitant]
  3. ENALAPRIL MALEATE [Concomitant]
  4. INSULIN [Concomitant]
  5. FUROSEMIDE [Concomitant]
  6. ZOCORD (SIMVASTATIN) [Concomitant]
  7. PLAVIX [Concomitant]

REACTIONS (3)
  - ANAEMIA [None]
  - DYSPNOEA [None]
  - LUNG INFILTRATION [None]
